FAERS Safety Report 16406444 (Version 4)
Quarter: 2019Q3

REPORT INFORMATION
  Report Type: Spontaneous
  Country: DE (occurrence: DE)
  Receive Date: 20190607
  Receipt Date: 20190725
  Transmission Date: 20191004
  Serious: Yes (Other)
  Sender: FDA-Public Use
  Company Number: PHHY2019DE131175

PATIENT
  Sex: Male

DRUGS (16)
  1. PANTOPRAZOL BIOMO [Concomitant]
     Indication: PRODUCT USED FOR UNKNOWN INDICATION
     Dosage: 20 MG, QD (EVENING)
     Route: 065
  2. OMACOR [Concomitant]
     Active Substance: OMEGA-3-ACID ETHYL ESTERS
     Indication: PRODUCT USED FOR UNKNOWN INDICATION
     Dosage: UNK UNK, QD (MORNING)
     Route: 065
  3. ARMOLIPID [Concomitant]
     Indication: PRODUCT USED FOR UNKNOWN INDICATION
     Dosage: UNK
     Route: 065
  4. SIMVABETA [Concomitant]
     Active Substance: SIMVASTATIN
     Indication: PRODUCT USED FOR UNKNOWN INDICATION
     Dosage: 40 MG, QD (EVENING)
     Route: 065
     Dates: end: 201612
  5. XIGDUO XR [Concomitant]
     Active Substance: DAPAGLIFLOZIN PROPANEDIOL\METFORMIN HYDROCHLORIDE
     Indication: PRODUCT USED FOR UNKNOWN INDICATION
     Dosage: 1 DF, BID (5/1000 MG), BID, MORNINGS AND EVENING
     Route: 065
  6. LANTUS SOLOSTAR [Concomitant]
     Active Substance: INSULIN GLARGINE
     Indication: PRODUCT USED FOR UNKNOWN INDICATION
     Dosage: 14 OT, QD (EVENING)
     Route: 065
  7. VALSARTAN 1 A PHARMA [Suspect]
     Active Substance: VALSARTAN
     Indication: HYPERTENSION
     Dosage: 1 DF, QD ( 1X 160 MG/ 25 MG IN THE MORNING)
     Route: 065
     Dates: start: 20180516, end: 20181023
  8. LIPIDIL [Concomitant]
     Active Substance: FENOFIBRATE
     Indication: PRODUCT USED FOR UNKNOWN INDICATION
     Dosage: UNK
     Route: 065
  9. ASPIRINE PROTECT [Concomitant]
     Active Substance: ASPIRIN
     Indication: PRODUCT USED FOR UNKNOWN INDICATION
     Dosage: 100 MG, QD (MORNING)
     Route: 065
  10. PROSTAGUTT FORTE [Concomitant]
     Active Substance: HERBALS
     Indication: PRODUCT USED FOR UNKNOWN INDICATION
     Dosage: 280 MG (160/120 MG), UNK
     Route: 065
  11. VALSACOR [Concomitant]
     Active Substance: VALSARTAN
     Indication: PRODUCT USED FOR UNKNOWN INDICATION
     Dosage: 1 DF, UNK (160/25 MG)
     Route: 065
     Dates: start: 20181023
  12. LANTUS SOLOSTAR [Concomitant]
     Active Substance: INSULIN GLARGINE
     Dosage: 30 OT, QD (EVENING)
     Route: 065
  13. METOPROLOL RATIOPHARM [Concomitant]
     Active Substance: METOPROLOL
     Indication: PRODUCT USED FOR UNKNOWN INDICATION
     Dosage: 0.5X 100 MG BID (MORNING AND EVENING)
     Route: 065
  14. JANUVIA [Concomitant]
     Active Substance: SITAGLIPTIN PHOSPHATE
     Indication: PRODUCT USED FOR UNKNOWN INDICATION
     Dosage: 100 MG, QD (MORNING)
     Route: 065
  15. TAMSULOSIN WINTHROP [Concomitant]
     Active Substance: TAMSULOSIN HYDROCHLORIDE
     Indication: PRODUCT USED FOR UNKNOWN INDICATION
     Dosage: 0.4 MG, QD (MORNING)
     Route: 065
  16. INEGY [Concomitant]
     Active Substance: EZETIMIBE\SIMVASTATIN
     Indication: PRODUCT USED FOR UNKNOWN INDICATION
     Dosage: 1 DF, QD (EVENING)
     Route: 065

REACTIONS (16)
  - Tonsillitis [Unknown]
  - Anxiety [Unknown]
  - Arteriosclerosis [Unknown]
  - Benign prostatic hyperplasia [Unknown]
  - Nephrolithiasis [Unknown]
  - Dizziness [Unknown]
  - Seasonal allergy [Unknown]
  - Hepatic steatosis [Unknown]
  - Loss of personal independence in daily activities [Unknown]
  - Myocardial ischaemia [Unknown]
  - Vomiting [Unknown]
  - Renal impairment [Unknown]
  - Blood pressure increased [Unknown]
  - Gastritis [Unknown]
  - Insulin-requiring type 2 diabetes mellitus [Unknown]
  - Lipid metabolism disorder [Unknown]
